FAERS Safety Report 7257090 (Version 5)
Quarter: 2016Q1

REPORT INFORMATION
  Report Type: Spontaneous
  Country: JP (occurrence: JP)
  Receive Date: 20100126
  Receipt Date: 20160121
  Transmission Date: 20160526
  Serious: Yes (Hospitalization, Other)
  Sender: FDA-Public Use
  Company Number: JP-GILEAD-E2B_00000557

PATIENT
  Age: 48 Year
  Sex: Male

DRUGS (5)
  1. HEPSERA [Suspect]
     Active Substance: ADEFOVIR DIPIVOXIL
     Dosage: 10 MG, 3 TIMES WEEKLY
     Route: 048
     Dates: start: 200912
  2. ZEFIX [Concomitant]
     Active Substance: LAMIVUDINE
     Indication: PRODUCT USED FOR UNKNOWN INDICATION
     Route: 048
     Dates: start: 200401
  3. ROCALTROL [Concomitant]
     Active Substance: CALCITRIOL
     Indication: PRODUCT USED FOR UNKNOWN INDICATION
     Route: 048
     Dates: start: 200910
  4. HEPSERA [Suspect]
     Active Substance: ADEFOVIR DIPIVOXIL
     Indication: CHRONIC HEPATITIS B
     Dosage: 10 MG, QD
     Route: 048
     Dates: start: 200404, end: 200912
  5. URSO [Concomitant]
     Active Substance: URSODIOL
     Indication: PRODUCT USED FOR UNKNOWN INDICATION
     Route: 048
     Dates: start: 200401, end: 200907

REACTIONS (15)
  - Acquired aminoaciduria [Recovering/Resolving]
  - Blood alkaline phosphatase increased [Recovering/Resolving]
  - Tubulointerstitial nephritis [Recovering/Resolving]
  - Urine calcium increased [Unknown]
  - Hypophosphataemia [Recovering/Resolving]
  - Renal atrophy [Recovering/Resolving]
  - Renal glycosuria [Unknown]
  - Vitamin D decreased [Recovering/Resolving]
  - Fanconi syndrome acquired [Recovering/Resolving]
  - Osteomalacia [Recovering/Resolving]
  - Renal impairment [Recovering/Resolving]
  - Hypouricaemia [Recovering/Resolving]
  - Bone pain [Unknown]
  - Urine phosphorus increased [Unknown]
  - pH urine decreased [Unknown]

NARRATIVE: CASE EVENT DATE: 2006
